FAERS Safety Report 8697609 (Version 2)
Quarter: 2013Q3

REPORT INFORMATION
  Report Type: Report from Study
  Country: US (occurrence: US)
  Receive Date: 20120801
  Receipt Date: 20130725
  Transmission Date: 20140515
  Serious: Yes (Hospitalization)
  Sender: FDA-Public Use
  Company Number: US-ELI_LILLY_AND_COMPANY-US201207007744

PATIENT
  Age: 72 Year
  Sex: Female

DRUGS (5)
  1. TERIPARATIDE [Suspect]
     Indication: OSTEOPOROSIS
     Dosage: 20 UG, QD
     Dates: start: 201107, end: 201204
  2. CELEBREX [Concomitant]
     Dosage: UNK, QD
  3. PREDNISONE [Concomitant]
     Dosage: UNK, 3/W
  4. METHOTREXATE [Concomitant]
     Dosage: UNK, OTHER
  5. HYDROCODONE [Concomitant]
     Dosage: UNK, PRN

REACTIONS (7)
  - Blood blister [Unknown]
  - Gait disturbance [Unknown]
  - Joint range of motion decreased [Unknown]
  - Pain [Unknown]
  - Rheumatoid arthritis [Unknown]
  - Back injury [Unknown]
  - Fracture [Unknown]
